FAERS Safety Report 13833570 (Version 11)
Quarter: 2020Q2

REPORT INFORMATION
  Report Type: Report from Study
  Country: US (occurrence: US)
  Receive Date: 20170804
  Receipt Date: 20200410
  Transmission Date: 20200713
  Serious: No
  Sender: FDA-Public Use
  Company Number: US-JAZZ-2017-US-008222

PATIENT
  Age: 33 Year
  Sex: Female

DRUGS (12)
  1. XYREM [Suspect]
     Active Substance: SODIUM OXYBATE
     Dosage: 3.50 G, BID
     Route: 048
     Dates: start: 201706
  2. XYREM [Suspect]
     Active Substance: SODIUM OXYBATE
     Dosage: 2.75 G, BID
     Route: 048
     Dates: start: 2017
  3. XYREM [Suspect]
     Active Substance: SODIUM OXYBATE
     Dosage: 2.25 G, BID
     Route: 048
     Dates: start: 2017
  4. XYREM [Suspect]
     Active Substance: SODIUM OXYBATE
     Indication: CATAPLEXY
     Dosage: 3.00 G, BID
     Route: 048
     Dates: start: 201706, end: 201706
  5. XYREM [Suspect]
     Active Substance: SODIUM OXYBATE
     Dosage: 3.00 G, BID
     Route: 048
     Dates: start: 2017
  6. XYREM [Suspect]
     Active Substance: SODIUM OXYBATE
     Dosage: UNK DOSE, BID
     Route: 048
  7. TRINTELLIX [Suspect]
     Active Substance: VORTIOXETINE HYDROBROMIDE
     Indication: PRODUCT USED FOR UNKNOWN INDICATION
  8. XYREM [Suspect]
     Active Substance: SODIUM OXYBATE
     Dosage: 3.75 G, BID
     Route: 048
     Dates: start: 2017
  9. ARMODAFINIL. [Suspect]
     Active Substance: ARMODAFINIL
     Indication: PRODUCT USED FOR UNKNOWN INDICATION
  10. XYREM [Suspect]
     Active Substance: SODIUM OXYBATE
     Indication: NARCOLEPSY
     Dosage: 2.25 G, BID
     Route: 048
     Dates: start: 201706, end: 201706
  11. ZOLOFT [Suspect]
     Active Substance: SERTRALINE HYDROCHLORIDE
     Indication: DEPRESSION
  12. XYREM [Suspect]
     Active Substance: SODIUM OXYBATE
     Dosage: UNK DOSE, QD
     Route: 048

REACTIONS (23)
  - Oropharyngeal pain [Unknown]
  - Dizziness [Not Recovered/Not Resolved]
  - Malaise [Unknown]
  - Nausea [Recovering/Resolving]
  - Premenstrual syndrome [Not Recovered/Not Resolved]
  - Headache [Recovering/Resolving]
  - Ear pain [Unknown]
  - Paranasal sinus discomfort [Unknown]
  - Cystitis [Recovered/Resolved]
  - Paraesthesia [Not Recovered/Not Resolved]
  - Sinusitis [Unknown]
  - Head discomfort [Unknown]
  - Nasopharyngitis [Not Recovered/Not Resolved]
  - Hypoaesthesia [Not Recovered/Not Resolved]
  - Feeling abnormal [Recovering/Resolving]
  - Fatigue [Unknown]
  - Anxiety [Recovering/Resolving]
  - Aphthous ulcer [Recovered/Resolved]
  - Psychomotor hyperactivity [Unknown]
  - Depression [Not Recovered/Not Resolved]
  - Tremor [Recovered/Resolved]
  - Asthenia [Recovered/Resolved]
  - Somnolence [Not Recovered/Not Resolved]

NARRATIVE: CASE EVENT DATE: 2017
